FAERS Safety Report 8301430-8 (Version None)
Quarter: 2012Q2

REPORT INFORMATION
  Report Type: 
  Country: None (occurrence: None)
  Receive Date: 20120420
  Receipt Date: 20120412
  Transmission Date: 20120825
  Serious: Yes (Other)
  Sender: FDA-Public Use
  Company Number: FR-JNJFOC-20120407107

PATIENT
  Sex: Female

DRUGS (1)
  1. DURAGESIC-100 [Suspect]
     Indication: PRODUCT USED FOR UNKNOWN INDICATION
     Dosage: FOR ABOUT 3 YEARS
     Route: 062

REACTIONS (3)
  - DRUG INEFFECTIVE [None]
  - WITHDRAWAL SYNDROME [None]
  - DRUG PRESCRIBING ERROR [None]
